FAERS Safety Report 9107056 (Version 2)
Quarter: 2013Q3

REPORT INFORMATION
  Report Type: Spontaneous
  Country: US (occurrence: US)
  Receive Date: 20130221
  Receipt Date: 20130823
  Transmission Date: 20140515
  Serious: Yes (Hospitalization)
  Sender: FDA-Public Use
  Company Number: US-BAYER-2013-019248

PATIENT
  Age: 53 Year
  Sex: Female

DRUGS (10)
  1. YASMIN [Suspect]
     Indication: MENORRHAGIA
  2. YAZ [Suspect]
  3. CIPROFLOXACIN HCL [Concomitant]
     Indication: URINARY TRACT INFECTION
     Dosage: 500 MG, BID FOR 7 DAYS
  4. TRAZODONE [Concomitant]
  5. AMBIEN CR [Concomitant]
     Dosage: 12.5 MG, UNK
  6. FLURBIPROFEN [Concomitant]
     Dosage: 100 MG, UNK
  7. HYDROCODONE W/APAP [Concomitant]
     Dosage: 5/500
  8. AMOXICILLIN [Concomitant]
     Dosage: 500 MG, UNK
  9. IBUPROFEN [IBUPROFEN] [Concomitant]
     Dosage: 400 MG, UNK
  10. FLEXERIL [Concomitant]
     Dosage: 5 MG, UNK

REACTIONS (1)
  - Ischaemic stroke [Recovering/Resolving]
